FAERS Safety Report 5693049-2 (Version None)
Quarter: 2008Q2

REPORT INFORMATION
  Report Type: 
  Country: None (occurrence: None)
  Receive Date: 20080402
  Receipt Date: 20080402
  Transmission Date: 20081010
  Serious: No
  Sender: FDA-Public Use
  Company Number: None

PATIENT
  Sex: Female
  Weight: 12.7007 kg

DRUGS (2)
  1. SINGULAIR [Suspect]
     Indication: ASTHMA
     Dosage: 1 TABLET ONCE PER DAY
     Dates: start: 20070901, end: 20080401
  2. SINGULAIR [Suspect]
     Indication: HYPERSENSITIVITY
     Dosage: 1 TABLET ONCE PER DAY
     Dates: start: 20070901, end: 20080401

REACTIONS (4)
  - AGGRESSION [None]
  - ANXIETY [None]
  - BREATH ODOUR [None]
  - MOOD SWINGS [None]
